FAERS Safety Report 6750241-3 (Version None)
Quarter: 2010Q2

REPORT INFORMATION
  Report Type: 
  Country: None (occurrence: None)
  Receive Date: 20100601
  Receipt Date: 20100526
  Transmission Date: 20101027
  Serious: Yes (Other)
  Sender: FDA-Public Use
  Company Number: US-RB-010142-10

PATIENT
  Age: 51 Year
  Sex: Male

DRUGS (2)
  1. SUBOXONE [Suspect]
     Dosage: 24 MG INDUCTION DOSE
     Route: 060
     Dates: start: 20100501, end: 20100501
  2. SUBOXONE [Suspect]
     Dosage: UNKNOWN DOSING DETAILS
     Route: 065

REACTIONS (4)
  - BLOOD PRESSURE ABNORMAL [None]
  - DRUG WITHDRAWAL SYNDROME [None]
  - LOSS OF CONSCIOUSNESS [None]
  - PALPITATIONS [None]
